FAERS Safety Report 16089430 (Version 4)
Quarter: 2019Q4

REPORT INFORMATION
  Report Type: Spontaneous
  Country: US (occurrence: US)
  Receive Date: 20190319
  Receipt Date: 20191216
  Transmission Date: 20200122
  Serious: Yes (Hospitalization, Other)
  Sender: FDA-Public Use
  Company Number: US-PFIZER INC-2019109528

PATIENT
  Age: 81 Year
  Sex: Male
  Weight: 81.63 kg

DRUGS (8)
  1. ARAVA [Concomitant]
     Active Substance: LEFLUNOMIDE
     Dosage: UNK
     Dates: start: 201707
  2. XELJANZ XR [Suspect]
     Active Substance: TOFACITINIB CITRATE
     Indication: ARTHRITIS
     Dosage: 11 MG, 1X/DAY
     Route: 048
     Dates: start: 201701
  3. XELJANZ XR [Suspect]
     Active Substance: TOFACITINIB CITRATE
     Indication: RHEUMATOID ARTHRITIS
     Dosage: 11 MG, 1X/DAY
     Route: 048
     Dates: start: 201705
  4. METOPROLOL SUCCINATE. [Concomitant]
     Active Substance: METOPROLOL SUCCINATE
     Indication: CARDIAC DISORDER
     Dosage: UNK
     Dates: start: 2002
  5. PREDNISONE. [Concomitant]
     Active Substance: PREDNISONE
     Dosage: UNK
     Dates: start: 201707
  6. ELIQUIS [Concomitant]
     Active Substance: APIXABAN
     Dosage: UNK
     Dates: start: 2019
  7. VENTOLIN HFA [Concomitant]
     Active Substance: ALBUTEROL SULFATE
     Dosage: UNK
     Dates: start: 2002
  8. ATORVASTATIN [Concomitant]
     Active Substance: ATORVASTATIN
     Indication: CARDIAC DISORDER
     Dosage: UNK
     Dates: start: 2002

REACTIONS (5)
  - Mental impairment [Unknown]
  - Thrombosis [Recovered/Resolved]
  - Fatigue [Unknown]
  - Dyspnoea [Recovered/Resolved]
  - Pulmonary thrombosis [Recovered/Resolved]

NARRATIVE: CASE EVENT DATE: 201812
